FAERS Safety Report 8206760-6 (Version None)
Quarter: 2012Q1

REPORT INFORMATION
  Report Type: 
  Country: None (occurrence: None)
  Receive Date: 20120309
  Receipt Date: 20120301
  Transmission Date: 20120608
  Serious: Yes (Hospitalization)
  Sender: FDA-Public Use
  Company Number: 2012SP012012

PATIENT
  Age: 55 Year
  Sex: Female

DRUGS (3)
  1. TELAVIC (TELAPREVIR) (INVESTIGATIONAL DRUG) [Suspect]
     Indication: PRODUCT USED FOR UNKNOWN INDICATION
     Dosage: 2250 MG;QD;PO
     Route: 048
     Dates: start: 20120223, end: 20120225
  2. REBETOL [Suspect]
     Indication: PRODUCT USED FOR UNKNOWN INDICATION
     Dosage: 600 MG;QD;PO
     Route: 048
     Dates: start: 20120223, end: 20120225
  3. PEG-INTRON [Suspect]
     Indication: PRODUCT USED FOR UNKNOWN INDICATION
     Dosage: 80 MCG;QW;SC
     Route: 058
     Dates: start: 20120223

REACTIONS (3)
  - PYREXIA [None]
  - PRURITUS [None]
  - ERYTHEMA [None]
